FAERS Safety Report 10258064 (Version 1)
Quarter: 2014Q2

REPORT INFORMATION
  Report Type: Spontaneous
  Country: US (occurrence: US)
  Receive Date: 20140625
  Receipt Date: 20140625
  Transmission Date: 20141212
  Serious: No
  Sender: FDA-Public Use
  Company Number: US-BAYER-2014-095177

PATIENT
  Age: 82 Year
  Sex: Female

DRUGS (3)
  1. ALEVE CAPLET [Suspect]
     Indication: PAIN
     Dosage: 0.5 DF
     Route: 048
  2. ALEVE CAPLET [Suspect]
     Indication: SWELLING
  3. EVISTA [RALOXIFENE HYDROCHLORIDE] [Concomitant]

REACTIONS (1)
  - Intentional product misuse [None]
